FAERS Safety Report 8915927 (Version 1)
Quarter: 2012Q4

REPORT INFORMATION
  Report Type: 
  Country: LU (occurrence: LU)
  Receive Date: 20121119
  Receipt Date: 20121119
  Transmission Date: 20130627
  Serious: Yes (Other)
  Sender: FDA-Public Use
  Company Number: LU-PFIZER INC-2012286466

PATIENT
  Age: 54 Year
  Sex: Female
  Weight: 63 kg

DRUGS (5)
  1. LIPITOR [Suspect]
     Dosage: 80 mg, daily
     Route: 048
     Dates: start: 201207, end: 20121010
  2. BRILIQUE [Interacting]
     Dosage: UNK
     Route: 048
     Dates: start: 201207
  3. EMCONCOR [Concomitant]
     Indication: STEMI
     Dosage: 5 mg, 1x/day
     Route: 048
     Dates: start: 201207
  4. ASPIRIN ^BAYER^ [Concomitant]
     Dosage: 100 mg, 1x/day
     Route: 048
     Dates: start: 201207
  5. COZAAR [Concomitant]
     Indication: HYPERTENSION ARTERIAL
     Dosage: 50 mg, UNK
     Route: 048
     Dates: start: 201208

REACTIONS (4)
  - Drug interaction [Recovering/Resolving]
  - Nephrotic syndrome [Recovering/Resolving]
  - Hepatic function abnormal [Recovering/Resolving]
  - Urine abnormality [Unknown]
